FAERS Safety Report 9788564 (Version 2)
Quarter: 2013Q4

REPORT INFORMATION
  Report Type: Spontaneous
  Country: GB (occurrence: GB)
  Receive Date: 20131230
  Receipt Date: 20131230
  Transmission Date: 20140711
  Serious: Yes (Hospitalization)
  Sender: FDA-Public Use
  Company Number: GB-UCBSA-106945

PATIENT
  Age: 54 Year
  Sex: Female

DRUGS (2)
  1. KEPPRA [Suspect]
     Dosage: DOSE PATIENT WAS RECEIVING ON ENTERY TO CLINIC: 3000
  2. EPILIM [Suspect]
     Dosage: TOTAL DAILY DOSE PATIENT WAS RECEIVING ON ENTRY TO THE CLINIC: 3000

REACTIONS (4)
  - Grand mal convulsion [Unknown]
  - Myoclonus [Unknown]
  - Drug ineffective [Unknown]
  - Unevaluable event [Unknown]
